FAERS Safety Report 8205941-5 (Version None)
Quarter: 2012Q1

REPORT INFORMATION
  Report Type: 
  Country: None (occurrence: None)
  Receive Date: 20120309
  Receipt Date: 20120302
  Transmission Date: 20120608
  Serious: Yes (Death)
  Sender: FDA-Public Use
  Company Number: 2012SP011395

PATIENT
  Sex: Male

DRUGS (4)
  1. PRISTIQ [Suspect]
     Indication: ANXIETY
     Dosage: 200 MG
  2. PRISTIQ [Suspect]
     Indication: INSOMNIA
     Dosage: 200 MG
  3. ALPRAZOLAM [Suspect]
     Indication: ANXIETY
     Dosage: 8 MG
  4. MIRTAZAPINE [Suspect]
     Indication: INSOMNIA
     Dosage: 30 MG

REACTIONS (19)
  - BRONCHOPNEUMONIA [None]
  - ANTISOCIAL BEHAVIOUR [None]
  - SWELLING FACE [None]
  - AGITATION [None]
  - AGGRESSION [None]
  - PERSONALITY CHANGE [None]
  - ECONOMIC PROBLEM [None]
  - INTENTIONAL OVERDOSE [None]
  - MANIA [None]
  - JOB DISSATISFACTION [None]
  - FATIGUE [None]
  - WITHDRAWAL SYNDROME [None]
  - SUICIDAL IDEATION [None]
  - IMPAIRED DRIVING ABILITY [None]
  - ACCIDENTAL OVERDOSE [None]
  - ABNORMAL BEHAVIOUR [None]
  - BIPOLAR DISORDER [None]
  - INSOMNIA [None]
  - PAIN IN JAW [None]
